FAERS Safety Report 9088753 (Version 1)
Quarter: 2013Q1

REPORT INFORMATION
  Report Type: Spontaneous
  Country: IT (occurrence: IT)
  Receive Date: 20130201
  Receipt Date: 20130201
  Transmission Date: 20140127
  Serious: Yes (Hospitalization)
  Sender: FDA-Public Use
  Company Number: IT-MYLANLABS-2013S1001404

PATIENT
  Age: 52 Year
  Sex: Female

DRUGS (1)
  1. TRIAZOLAM [Suspect]
     Route: 065

REACTIONS (1)
  - Non-cardiogenic pulmonary oedema [Recovering/Resolving]
